FAERS Safety Report 21873790 (Version 1)
Quarter: 2023Q1

REPORT INFORMATION
  Report Type: Spontaneous
  Country: US (occurrence: None)
  Receive Date: 20230116
  Receipt Date: 20230116
  Transmission Date: 20230417
  Serious: No
  Sender: FDA-Public Use
  Company Number: None

PATIENT
  Age: 82 Year
  Sex: Male
  Weight: 63.5 kg

DRUGS (3)
  1. AMLODIPINE BESYLATE [Suspect]
     Active Substance: AMLODIPINE BESYLATE
     Indication: Blood pressure abnormal
     Dosage: 1 PILL ONCE MOUTH
     Route: 048
     Dates: start: 20221112, end: 20221115
  2. FINASTERIDE [Concomitant]
     Active Substance: FINASTERIDE
  3. TAMSULOSIN [Concomitant]
     Active Substance: TAMSULOSIN

REACTIONS (7)
  - Dry skin [None]
  - Rash [None]
  - Rash [None]
  - Rash [None]
  - Rash pruritic [None]
  - Dry skin [None]
  - Pollakiuria [None]

NARRATIVE: CASE EVENT DATE: 20221114
